FAERS Safety Report 9986588 (Version 1)
Quarter: 2014Q1

REPORT INFORMATION
  Report Type: Report from Study
  Country: US (occurrence: US)
  Receive Date: 20140307
  Receipt Date: 20140307
  Transmission Date: 20141002
  Serious: No
  Sender: FDA-Public Use
  Company Number: US-ABBVIE-13P-163-1169750-00

PATIENT
  Age: 52 Year
  Sex: Female

DRUGS (2)
  1. HUMIRA [Suspect]
     Indication: CROHN^S DISEASE
     Route: 058
     Dates: start: 20130105, end: 20130613
  2. HUMIRA [Suspect]
     Route: 058
     Dates: start: 20130613

REACTIONS (2)
  - Myalgia [Unknown]
  - Arthralgia [Unknown]
